FAERS Safety Report 19752330 (Version 1)
Quarter: 2021Q3

REPORT INFORMATION
  Report Type: Report from Study
  Country: US (occurrence: US)
  Receive Date: 20210827
  Receipt Date: 20210827
  Transmission Date: 20211014
  Serious: No
  Sender: FDA-Public Use
  Company Number: US-ESPERIONTHERAPEUTICS-2021USA01549

PATIENT
  Sex: Male

DRUGS (1)
  1. BEMPEDOIC ACID. [Suspect]
     Active Substance: BEMPEDOIC ACID
     Indication: BLOOD CHOLESTEROL ABNORMAL
     Dosage: UNK
     Route: 065

REACTIONS (2)
  - Visual impairment [Unknown]
  - Product dose omission issue [Unknown]
